FAERS Safety Report 4617738-3 (Version None)
Quarter: 2005Q1

REPORT INFORMATION
  Report Type: 
  Country: None (occurrence: None)
  Receive Date: 20050324
  Receipt Date: 20050308
  Transmission Date: 20050727
  Serious: Yes (Life-Threatening)
  Sender: FDA-Public Use
  Company Number: JP-ROCHE-397666

PATIENT
  Age: 83 Year
  Sex: Male

DRUGS (4)
  1. PANALDINE [Suspect]
     Dosage: INDICATION: AFTER CYPHER STENT IMPLANTATION DUE TO PROPHYLAXIS OF RESTENOSIS
     Route: 048
     Dates: start: 20050104, end: 20050224
  2. PANALDINE [Suspect]
     Dosage: TAKEN FOR MANY YEARS.
     Route: 048
     Dates: end: 20050103
  3. ASPIRIN [Concomitant]
     Indication: ANGINA PECTORIS
     Dosage: TAKEN FOR MANY YEARS.
     Route: 048
  4. SIGMART [Concomitant]
     Indication: ANGINA PECTORIS
     Route: 048
     Dates: start: 20050104

REACTIONS (10)
  - ANGINA PECTORIS [None]
  - DISSEMINATED INTRAVASCULAR COAGULATION [None]
  - HAEMODIALYSIS [None]
  - HEPATIC FAILURE [None]
  - HISTIOCYTOSIS HAEMATOPHAGIC [None]
  - NAUSEA [None]
  - PSYCHIATRIC SYMPTOM [None]
  - RENAL FAILURE ACUTE [None]
  - THROMBOTIC THROMBOCYTOPENIC PURPURA [None]
  - VOMITING [None]
